FAERS Safety Report 11943667 (Version 1)
Quarter: 2016Q1

REPORT INFORMATION
  Report Type: Spontaneous
  Country: US (occurrence: US)
  Receive Date: 20160125
  Receipt Date: 20160125
  Transmission Date: 20160526
  Serious: No
  Sender: FDA-Public Use
  Company Number: US-UNITED THERAPEUTICS-UNT-2015-008839

PATIENT
  Age: 63 Year
  Sex: Female
  Weight: 67.98 kg

DRUGS (5)
  1. DIURETICS [Suspect]
     Active Substance: UNSPECIFIED INGREDIENT
     Indication: PRODUCT USED FOR UNKNOWN INDICATION
     Dosage: UNKNOWN
     Route: 065
  2. LETAIRIS [Concomitant]
     Active Substance: AMBRISENTAN
     Indication: PRODUCT USED FOR UNKNOWN INDICATION
  3. TYVASO [Suspect]
     Active Substance: TREPROSTINIL
     Indication: PULMONARY HYPERTENSION
     Dosage: 18-54 MICROGRAMS, QID
     Dates: start: 20150709
  4. TYVASO [Suspect]
     Active Substance: TREPROSTINIL
     Dosage: UNK
  5. ADCIRCA [Concomitant]
     Active Substance: TADALAFIL
     Indication: PRODUCT USED FOR UNKNOWN INDICATION

REACTIONS (18)
  - Cough [Unknown]
  - Headache [Not Recovered/Not Resolved]
  - Lethargy [Unknown]
  - Tremor [Unknown]
  - Abdominal discomfort [Unknown]
  - Heart rate increased [Unknown]
  - Throat tightness [Unknown]
  - Dizziness [Not Recovered/Not Resolved]
  - Diarrhoea [Not Recovered/Not Resolved]
  - Oxygen consumption increased [Unknown]
  - Blood pressure decreased [Unknown]
  - Fatigue [Unknown]
  - Chest discomfort [Unknown]
  - Sinus congestion [Unknown]
  - Device issue [Unknown]
  - Presyncope [Unknown]
  - Drug effect decreased [Not Recovered/Not Resolved]
  - Dyspnoea [Unknown]

NARRATIVE: CASE EVENT DATE: 2015
